FAERS Safety Report 10736452 (Version 1)
Quarter: 2015Q1

REPORT INFORMATION
  Report Type: Spontaneous
  Country: US (occurrence: None)
  Receive Date: 20150112
  Receipt Date: 20150112
  Transmission Date: 20150721
  Serious: Yes (Life-Threatening)
  Sender: FDA-Public Use
  Company Number: 1464238

PATIENT

DRUGS (1)
  1. ALTEPLASE (ALTEPLASE) (INFUSION, SOLUTION) [Suspect]
     Active Substance: ALTEPLASE
     Indication: ISCHAEMIC STROKE
     Dosage: NOT OTHERWISE SPECIFIED
     Route: 042

REACTIONS (1)
  - Haemorrhage [None]
